FAERS Safety Report 9447468 (Version 2)
Quarter: 2013Q3

REPORT INFORMATION
  Report Type: Spontaneous
  Country: US (occurrence: US)
  Receive Date: 20130808
  Receipt Date: 20130821
  Transmission Date: 20140515
  Serious: No
  Sender: FDA-Public Use
  Company Number: US-PFIZER INC-2013226418

PATIENT
  Age: 30 Year
  Sex: Female
  Weight: 52.15 kg

DRUGS (2)
  1. EPIPEN [Suspect]
     Indication: ANAPHYLACTIC REACTION
     Dosage: 0.3 MG, AS NEEDED
     Route: 030
  2. EPIPEN [Suspect]
     Indication: FOOD ALLERGY

REACTIONS (1)
  - Tremor [Recovered/Resolved]
